FAERS Safety Report 4269559-1 (Version None)
Quarter: 2004Q1

REPORT INFORMATION
  Report Type: 
  Country: None (occurrence: None)
  Receive Date: 20040113
  Receipt Date: 20031226
  Transmission Date: 20041129
  Serious: No
  Sender: FDA-Public Use
  Company Number: 2004AP00009

PATIENT
  Age: 77 Year
  Sex: Male

DRUGS (3)
  1. IRESSA [Suspect]
     Indication: NON-SMALL CELL LUNG CANCER
     Dosage: 250 MG DAILY PO
     Route: 048
     Dates: start: 20030930, end: 20031018
  2. VINORELBINE [Concomitant]
  3. GEMCITABINE [Concomitant]

REACTIONS (5)
  - ACUTE PRERENAL FAILURE [None]
  - BLOOD PRESSURE DECREASED [None]
  - DEHYDRATION [None]
  - DIARRHOEA [None]
  - POSTRENAL FAILURE [None]
